FAERS Safety Report 8541145 (Version 3)
Quarter: 2014Q1

REPORT INFORMATION
  Report Type: Report from Study
  Country: JP (occurrence: JP)
  Receive Date: 20120502
  Receipt Date: 20140306
  Transmission Date: 20141002
  Serious: Yes (Hospitalization, Other)
  Sender: FDA-Public Use
  Company Number: JP-ROCHE-1064160

PATIENT
  Age: 35 Year
  Sex: Male

DRUGS (18)
  1. OMALIZUMAB [Suspect]
     Indication: ASTHMA
     Route: 058
     Dates: start: 20100401
  2. OMALIZUMAB [Suspect]
     Route: 065
     Dates: start: 20100415
  3. OMALIZUMAB [Suspect]
     Route: 065
     Dates: start: 20110217
  4. OMALIZUMAB [Suspect]
     Route: 065
     Dates: start: 20110224, end: 20110303
  5. ADOAIR [Concomitant]
     Route: 065
     Dates: start: 20091224
  6. QVAR [Concomitant]
     Route: 065
     Dates: start: 20090401, end: 20091224
  7. ALVESCO [Concomitant]
     Route: 065
     Dates: start: 20091224
  8. HOKUNALIN [Concomitant]
     Route: 065
     Dates: start: 20100430
  9. SEREVENT [Concomitant]
     Route: 065
     Dates: start: 20090401, end: 20091224
  10. KIPRES [Concomitant]
     Route: 065
     Dates: start: 20090401
  11. TALION (JAPAN) [Concomitant]
     Route: 065
     Dates: start: 20100430
  12. UNIPHYL [Concomitant]
     Route: 065
     Dates: start: 20090401
  13. MEPTIN AIR [Concomitant]
     Route: 065
     Dates: start: 20090401
  14. PARIET [Concomitant]
     Route: 065
     Dates: start: 20100401
  15. SPIRIVA [Concomitant]
     Route: 065
     Dates: start: 20100401
  16. CLARITH [Concomitant]
     Route: 065
     Dates: start: 20101028
  17. NASONEX [Concomitant]
     Route: 065
     Dates: start: 20100430
  18. MUCODYNE [Concomitant]
     Route: 065
     Dates: start: 20100401

REACTIONS (3)
  - Sinusitis [Recovering/Resolving]
  - Otitis media [Recovering/Resolving]
  - Eosinophilia [Not Recovered/Not Resolved]
